FAERS Safety Report 8290789-6 (Version None)
Quarter: 2012Q2

REPORT INFORMATION
  Report Type: 
  Country: None (occurrence: None)
  Receive Date: 20120417
  Receipt Date: 20120404
  Transmission Date: 20120825
  Serious: Yes (Hospitalization, Other)
  Sender: FDA-Public Use
  Company Number: CA-ROCHE-1026851

PATIENT
  Sex: Female

DRUGS (9)
  1. OMALIZUMAB [Suspect]
     Indication: RHINITIS
     Route: 058
     Dates: start: 20110214
  2. REACTINE (CANADA) [Concomitant]
  3. ADVAIR DISKUS 100/50 [Concomitant]
  4. ATROVENT [Concomitant]
  5. CYCLOBENZAPRINE HYDROCHLORIDE [Concomitant]
  6. OMALIZUMAB [Suspect]
     Indication: ASTHMA
     Route: 058
     Dates: start: 20100310, end: 20110214
  7. SINGULAIR [Concomitant]
  8. NASONEX [Concomitant]
  9. TAMOXIFEN CITRATE [Concomitant]

REACTIONS (16)
  - COELIAC DISEASE [None]
  - INJECTION SITE WARMTH [None]
  - FEELING COLD [None]
  - NASAL CONGESTION [None]
  - PNEUMONIA [None]
  - HAEMANGIOMA [None]
  - HYPOAESTHESIA [None]
  - PAIN IN EXTREMITY [None]
  - INJECTION SITE PAIN [None]
  - EYE INFECTION [None]
  - INJECTION SITE COLDNESS [None]
  - INJECTION SITE DISCOMFORT [None]
  - RHINORRHOEA [None]
  - NASOPHARYNGITIS [None]
  - EAR INFECTION [None]
  - SINUSITIS [None]
